FAERS Safety Report 9001082 (Version 1)
Quarter: 2013Q1

REPORT INFORMATION
  Report Type: Spontaneous
  Country: US (occurrence: US)
  Receive Date: 20130107
  Receipt Date: 20130107
  Transmission Date: 20140127
  Serious: Yes (Other)
  Sender: FDA-Public Use
  Company Number: US-SANOFI-AVENTIS-2012SA095235

PATIENT
  Sex: Male

DRUGS (4)
  1. LANTUS SOLOSTAR [Suspect]
     Indication: TYPE 1 DIABETES MELLITUS
     Dosage: 35 UNITS IN THE AM AND 15 UNITS IN THE PM.
     Route: 058
     Dates: start: 2007
  2. LANTUS SOLOSTAR [Suspect]
     Indication: TYPE 1 DIABETES MELLITUS
     Dosage: 35 UNITS IN THE AM AND 15 UNITS IN THE PM.
     Route: 058
     Dates: start: 2007
  3. SOLOSTAR [Suspect]
     Indication: TYPE 1 DIABETES MELLITUS
     Dates: start: 2007
  4. SOLOSTAR [Suspect]
     Indication: TYPE 1 DIABETES MELLITUS
     Dates: start: 2007

REACTIONS (3)
  - Retinopathy [Unknown]
  - Eye haemorrhage [Unknown]
  - Renal transplant [Unknown]
